FAERS Safety Report 26105419 (Version 2)
Quarter: 2025Q4

REPORT INFORMATION
  Report Type: Spontaneous
  Country: US (occurrence: US)
  Receive Date: 20251201
  Receipt Date: 20251208
  Transmission Date: 20260118
  Serious: No
  Sender: EMCURE PHARMACEUTICALS LTD
  Company Number: US-AVET LIFESCIENCES LTD-2025-AVET-000343

PATIENT

DRUGS (2)
  1. ACYCLOVIR [Suspect]
     Active Substance: ACYCLOVIR
     Indication: Product used for unknown indication
     Dosage: UNK PO
     Route: 048
     Dates: start: 20251113, end: 20251118
  2. ACYCLOVIR [Suspect]
     Active Substance: ACYCLOVIR
     Dosage: OPENED THE CAPSULES AND INHALED THE CONTENTS THROUGH HER NOSE
     Dates: start: 20251113, end: 20251118

REACTIONS (7)
  - Burning sensation [Unknown]
  - Nasal congestion [Not Recovered/Not Resolved]
  - Secretion discharge [Not Recovered/Not Resolved]
  - Nausea [Unknown]
  - Eructation [Unknown]
  - Abdominal discomfort [Unknown]
  - Product use issue [Unknown]
